FAERS Safety Report 5517824-X (Version None)
Quarter: 2007Q4

REPORT INFORMATION
  Report Type: 
  Country: None (occurrence: None)
  Receive Date: 20071113
  Receipt Date: 20071025
  Transmission Date: 20080405
  Serious: Yes (Hospitalization)
  Sender: FDA-Public Use
  Company Number: DEP_00052_2007

PATIENT
  Age: 47 Year
  Sex: Female
  Weight: 111.1313 kg

DRUGS (10)
  1. METFORMIN HYDROCHLORIDE [Suspect]
     Indication: DIABETES MELLITUS
     Dosage: 2000MG, ORAL, 500 MG, ORAL, 1000 MG, ORAL, 1500 MG, ORAL
     Route: 048
     Dates: start: 20070605
  2. METFORMIN HYDROCHLORIDE [Suspect]
     Indication: DIABETES MELLITUS
     Dosage: 2000MG, ORAL, 500 MG, ORAL, 1000 MG, ORAL, 1500 MG, ORAL
     Route: 048
     Dates: start: 20070612
  3. METFORMIN HYDROCHLORIDE [Suspect]
     Indication: DIABETES MELLITUS
     Dosage: 2000MG, ORAL, 500 MG, ORAL, 1000 MG, ORAL, 1500 MG, ORAL
     Route: 048
     Dates: start: 20070619
  4. METFORMIN HYDROCHLORIDE [Suspect]
     Indication: DIABETES MELLITUS
     Dosage: 2000MG, ORAL, 500 MG, ORAL, 1000 MG, ORAL, 1500 MG, ORAL
     Route: 048
     Dates: start: 20070626
  5. EFFEXOR [Concomitant]
  6. TOPROL-XL [Concomitant]
  7. AVALIDE [Concomitant]
  8. PROVIGIL [Concomitant]
  9. LEVOTHYROXINE SODIUM [Concomitant]
  10. CLONOPIN [Concomitant]

REACTIONS (3)
  - ABDOMINAL PAIN [None]
  - PELVIC INFECTION [None]
  - UTERINE NEOPLASM [None]
